FAERS Safety Report 24060831 (Version 4)
Quarter: 2024Q3

REPORT INFORMATION
  Report Type: Spontaneous
  Country: US (occurrence: US)
  Receive Date: 20240708
  Receipt Date: 20240816
  Transmission Date: 20241016
  Serious: Yes (Other)
  Sender: ROCHE
  Company Number: US-ROCHE-10000017609

PATIENT
  Age: 59 Year
  Sex: Female
  Weight: 81.65 kg

DRUGS (24)
  1. XOLAIR [Suspect]
     Active Substance: OMALIZUMAB
     Indication: Mast cell activation syndrome
     Route: 058
     Dates: start: 20220812
  2. XOLAIR [Suspect]
     Active Substance: OMALIZUMAB
     Indication: Urticaria
     Route: 058
  3. XOLAIR [Suspect]
     Active Substance: OMALIZUMAB
     Indication: Asthma
  4. VALIUM [Suspect]
     Active Substance: DIAZEPAM
     Indication: Muscle spasms
     Route: 048
  5. PEPCID [Concomitant]
     Active Substance: FAMOTIDINE
  6. KETOTIFEN [Concomitant]
     Active Substance: KETOTIFEN
  7. LISINOPRIL [Concomitant]
     Active Substance: LISINOPRIL
  8. SINGULAIR [Concomitant]
     Active Substance: MONTELUKAST SODIUM
  9. VERAPAMIL [Concomitant]
     Active Substance: VERAPAMIL HYDROCHLORIDE
  10. ATORVASTATIN [Concomitant]
     Active Substance: ATORVASTATIN
  11. DRISDOL [Concomitant]
     Active Substance: ERGOCALCIFEROL
  12. MET 500 [Concomitant]
  13. POTASSIUM CHLORIDE [Concomitant]
     Active Substance: POTASSIUM CHLORIDE
  14. DILAUDID [Concomitant]
     Active Substance: HYDROMORPHONE HYDROCHLORIDE
  15. TRICOR [Concomitant]
     Active Substance: FENOFIBRATE
  16. TYLENOL [Concomitant]
     Active Substance: ACETAMINOPHEN
  17. NEXIUM 24HR [Concomitant]
     Active Substance: ESOMEPRAZOLE MAGNESIUM
  18. DETROL [Concomitant]
     Active Substance: TOLTERODINE TARTRATE
  19. COLACE [Concomitant]
     Active Substance: DOCUSATE SODIUM
  20. GAMUNEX-C [Concomitant]
     Active Substance: HUMAN IMMUNOGLOBULIN G
  21. PYRIDIUM [Concomitant]
     Active Substance: PHENAZOPYRIDINE
  22. TRULICITY [Concomitant]
     Active Substance: DULAGLUTIDE
  23. NURTEC ODT [Concomitant]
     Active Substance: RIMEGEPANT SULFATE
  24. HYDROCHLOROTHIAZIDE [Concomitant]
     Active Substance: HYDROCHLOROTHIAZIDE

REACTIONS (10)
  - Cystitis interstitial [Unknown]
  - Meniscus injury [Recovering/Resolving]
  - Device failure [Unknown]
  - Ill-defined disorder [Unknown]
  - Off label use [Unknown]
  - Type 2 diabetes mellitus [Not Recovered/Not Resolved]
  - Bladder spasm [Not Recovered/Not Resolved]
  - Syringe issue [Unknown]
  - Wrong technique in device usage process [Unknown]
  - COVID-19 [Recovered/Resolved]

NARRATIVE: CASE EVENT DATE: 20230528
